FAERS Safety Report 6324234-4 (Version None)
Quarter: 2009Q3

REPORT INFORMATION
  Report Type: 
  Country: None (occurrence: None)
  Receive Date: 20090818
  Receipt Date: 20090508
  Transmission Date: 20100115
  Serious: Yes (Hospitalization)
  Sender: FDA-Public Use
  Company Number: MEDI-0008373

PATIENT
  Age: 17 Month
  Sex: Female

DRUGS (1)
  1. SYNAGIS [Suspect]
     Dosage: 100 MG
     Dates: start: 20081112, end: 20081112

REACTIONS (1)
  - RESPIRATORY SYNCYTIAL VIRUS INFECTION [None]
